FAERS Safety Report 5446506-8 (Version None)
Quarter: 2007Q3

REPORT INFORMATION
  Report Type: 
  Country: None (occurrence: None)
  Receive Date: 20070907
  Receipt Date: 20070828
  Transmission Date: 20080115
  Serious: Yes (Hospitalization, Other)
  Sender: FDA-Public Use
  Company Number: AR-BRISTOL-MYERS SQUIBB COMPANY-13807466

PATIENT
  Age: 56 Year
  Sex: Female

DRUGS (8)
  1. ABATACEPT [Suspect]
     Indication: RHEUMATOID ARTHRITIS
     Route: 042
     Dates: start: 20060424, end: 20070528
  2. METHOTREXATE [Suspect]
     Indication: RHEUMATOID ARTHRITIS
     Route: 042
     Dates: start: 20050126
  3. PREDNISONE [Concomitant]
     Dates: start: 20040908
  4. ATENOLOL [Concomitant]
     Dates: start: 20040908
  5. ATORVASTATIN [Concomitant]
     Dates: start: 20060828
  6. EZETIMIBE [Concomitant]
     Dates: start: 20060828
  7. HYDROCORTISONE [Concomitant]
     Route: 042
     Dates: start: 20070725
  8. HEPARIN [Concomitant]
     Dates: start: 20070824

REACTIONS (7)
  - ACUTE RESPIRATORY FAILURE [None]
  - ANGINA UNSTABLE [None]
  - CARDIAC FAILURE [None]
  - LARYNGEAL GRANULOMA [None]
  - OBSTRUCTIVE AIRWAYS DISORDER [None]
  - PNEUMONIA [None]
  - TROPONIN INCREASED [None]
